FAERS Safety Report 8817634 (Version 1)
Quarter: 2012Q4

REPORT INFORMATION
  Report Type: 
  Country: AU (occurrence: AU)
  Receive Date: 20121001
  Receipt Date: 20121001
  Transmission Date: 20130627
  Serious: Yes (Disabling)
  Sender: FDA-Public Use
  Company Number: AU-ASTRAZENECA-2012SE74126

PATIENT
  Age: 58 Year
  Sex: Female

DRUGS (2)
  1. CRESTOR [Suspect]
     Indication: HYPERTENSION
     Route: 048
  2. INDAPAMIDE [Interacting]
     Indication: HYPERTENSION

REACTIONS (2)
  - Drug interaction [Recovered/Resolved]
  - Aphasia [Recovered/Resolved]
